FAERS Safety Report 9853336 (Version 1)
Quarter: 2014Q1

REPORT INFORMATION
  Report Type: Spontaneous
  Country: IT (occurrence: IT)
  Receive Date: 20140129
  Receipt Date: 20140129
  Transmission Date: 20141002
  Serious: Yes (Hospitalization)
  Sender: FDA-Public Use
  Company Number: IT-TEVA-458895ISR

PATIENT
  Age: 79 Year
  Sex: Female

DRUGS (6)
  1. AMOXICILLIN + CLAVULANIC ACID [Suspect]
     Indication: COUGH
     Dosage: 2 DF DAILY
     Route: 048
     Dates: start: 20131209, end: 20131212
  2. COUMADIN [Suspect]
     Indication: PRODUCT USED FOR UNKNOWN INDICATION
     Dosage: 1 DF DAILY
     Route: 048
     Dates: start: 20100101, end: 20131212
  3. TIARTAN - 600/12,5 MG COMPRESSE RIVESTITE CON FILM [Concomitant]
     Indication: PRODUCT USED FOR UNKNOWN INDICATION
  4. RYTMONORM - 150 MG COMPRESSE RIVESTITE [Concomitant]
     Indication: PRODUCT USED FOR UNKNOWN INDICATION
  5. EUTIROX - 100 MICROGRAMMI COMPRESSE [Concomitant]
     Indication: PRODUCT USED FOR UNKNOWN INDICATION
  6. LANSOPRAZOLE [Concomitant]
     Indication: PRODUCT USED FOR UNKNOWN INDICATION

REACTIONS (2)
  - Melaena [Recovering/Resolving]
  - Melaena [Recovering/Resolving]
